FAERS Safety Report 5475581-X (Version None)
Quarter: 2007Q4

REPORT INFORMATION
  Report Type: 
  Country: None (occurrence: None)
  Receive Date: 20071003
  Receipt Date: 20061221
  Transmission Date: 20080405
  Serious: No
  Sender: FDA-Public Use
  Company Number: US-KINGPHARMUSA00001-K200601622

PATIENT

DRUGS (7)
  1. SONATA [Suspect]
     Dates: end: 20061206
  2. SONATA [Suspect]
     Dates: start: 20061201
  3. LUNESTA [Concomitant]
     Indication: INSOMNIA
     Dosage: 3 MG, SINGLE
     Dates: start: 20061206, end: 20061206
  4. NORTRIPTYLINE HCL [Concomitant]
  5. MIRTAZAPINE [Concomitant]
  6. WELLBUTRIN [Concomitant]
  7. LEXAPRO [Concomitant]

REACTIONS (1)
  - DRUG INEFFECTIVE [None]
